FAERS Safety Report 22030933 (Version 2)
Quarter: 2023Q1

REPORT INFORMATION
  Report Type: Spontaneous
  Country: DE (occurrence: DE)
  Receive Date: 20230223
  Receipt Date: 20230310
  Transmission Date: 20230418
  Serious: Yes (Death, Life-Threatening, Hospitalization)
  Sender: FDA-Public Use
  Company Number: DE-TEVA-2023-DE-2858457

PATIENT
  Age: 30 Year
  Sex: Male

DRUGS (4)
  1. AZATHIOPRINE [Suspect]
     Active Substance: AZATHIOPRINE
     Indication: Crohn^s disease
     Route: 065
  2. PREDNISOLONE [Suspect]
     Active Substance: PREDNISOLONE
     Indication: Crohn^s disease
     Dosage: 1 MG/KG DAILY;
     Route: 065
  3. USTEKINUMAB [Suspect]
     Active Substance: USTEKINUMAB
     Indication: Crohn^s disease
     Route: 065
  4. ACYCLOVIR [Concomitant]
     Active Substance: ACYCLOVIR
     Indication: Herpes simplex
     Route: 065

REACTIONS (8)
  - Septic shock [Fatal]
  - Whipple^s disease [Not Recovered/Not Resolved]
  - Pneumonia [Recovering/Resolving]
  - Acute respiratory failure [Recovering/Resolving]
  - Oesophagitis [Unknown]
  - Herpes simplex [Unknown]
  - Systemic candida [Unknown]
  - Hepatitis E [Unknown]
